FAERS Safety Report 16499294 (Version 2)
Quarter: 2019Q3

REPORT INFORMATION
  Report Type: Spontaneous
  Country: US (occurrence: US)
  Receive Date: 20190701
  Receipt Date: 20190807
  Transmission Date: 20191004
  Serious: No
  Sender: FDA-Public Use
  Company Number: US-AMGEN-USASP2019102453

PATIENT
  Sex: Female

DRUGS (3)
  1. XGEVA [Suspect]
     Active Substance: DENOSUMAB
     Dosage: QMO
     Route: 065
     Dates: start: 201808
  2. XGEVA [Suspect]
     Active Substance: DENOSUMAB
     Indication: BREAST CANCER METASTATIC
     Dosage: UNK
     Route: 065
     Dates: start: 201704
  3. XGEVA [Suspect]
     Active Substance: DENOSUMAB
     Dosage: Q3MO
     Route: 065
     Dates: start: 2018

REACTIONS (2)
  - Root canal infection [Unknown]
  - Off label use [Unknown]

NARRATIVE: CASE EVENT DATE: 201905
